FAERS Safety Report 26109774 (Version 1)
Quarter: 2025Q4

REPORT INFORMATION
  Report Type: Spontaneous
  Country: AR (occurrence: AR)
  Receive Date: 20251201
  Receipt Date: 20251201
  Transmission Date: 20260119
  Serious: Yes (Other)
  Sender: PFIZER
  Company Number: AR-PFIZER INC-202500234948

PATIENT
  Age: 75 Year
  Sex: Male

DRUGS (1)
  1. VYNDAMAX [Suspect]
     Active Substance: TAFAMIDIS
     Indication: Cardiac amyloidosis
     Dosage: 61 MG, DAILY
     Dates: start: 20250412

REACTIONS (2)
  - Femur fracture [Unknown]
  - Bedridden [Unknown]
